FAERS Safety Report 6841146-8 (Version None)
Quarter: 2010Q3

REPORT INFORMATION
  Report Type: 
  Country: None (occurrence: None)
  Receive Date: 20100714
  Receipt Date: 20070626
  Transmission Date: 20110219
  Serious: Yes (Other)
  Sender: FDA-Public Use
  Company Number: US-PFIZER INC-2007054297

PATIENT
  Sex: Female
  Weight: 59.1 kg

DRUGS (4)
  1. CHANTIX [Suspect]
     Indication: EX-TOBACCO USER
     Route: 048
     Dates: start: 20070515
  2. ALPRAZOLAM [Concomitant]
     Dosage: DAILY
     Route: 048
  3. VITAMINS [Concomitant]
     Route: 048
  4. HYDROCODONE [Concomitant]
     Route: 048

REACTIONS (3)
  - NAUSEA [None]
  - VOMITING [None]
  - WEIGHT DECREASED [None]
